FAERS Safety Report 25646403 (Version 2)
Quarter: 2025Q3

REPORT INFORMATION
  Report Type: Spontaneous
  Country: EU (occurrence: EU)
  Receive Date: 20250805
  Receipt Date: 20250812
  Transmission Date: 20251020
  Serious: Yes (Life-Threatening, Hospitalization, Other)
  Sender: MYLAN
  Company Number: EU-SANDOZ-SDZ2025BE050083

PATIENT
  Age: 41 Year
  Sex: Female

DRUGS (4)
  1. ACETAMINOPHEN [Suspect]
     Active Substance: ACETAMINOPHEN
     Indication: Respiratory symptom
     Dosage: 12 GRAM, QD (FOR THE PAST 3 DAYS (2G, 6 TIMES PER DAY))
  2. ACETAMINOPHEN [Suspect]
     Active Substance: ACETAMINOPHEN
     Indication: Pyrexia
     Dosage: 12 GRAM, QD (FOR THE PAST 3 DAYS (2G, 6 TIMES PER DAY))
     Route: 065
  3. ACETAMINOPHEN [Suspect]
     Active Substance: ACETAMINOPHEN
     Dosage: 12 GRAM, QD (FOR THE PAST 3 DAYS (2G, 6 TIMES PER DAY))
     Route: 065
  4. ACETAMINOPHEN [Suspect]
     Active Substance: ACETAMINOPHEN
     Dosage: 12 GRAM, QD (FOR THE PAST 3 DAYS (2G, 6 TIMES PER DAY))

REACTIONS (6)
  - Toxicity to various agents [Unknown]
  - Accidental overdose [Recovered/Resolved]
  - Malaise [Unknown]
  - Hepatic enzyme increased [Unknown]
  - Abortion spontaneous [Recovered/Resolved]
  - Exposure during pregnancy [Recovered/Resolved]
